FAERS Safety Report 6999855-6 (Version None)
Quarter: 2010Q3

REPORT INFORMATION
  Report Type: 
  Country: None (occurrence: None)
  Receive Date: 20100920
  Receipt Date: 20071008
  Transmission Date: 20110219
  Serious: No
  Sender: FDA-Public Use
  Company Number: US-ASTRAZENECA-2007UW19246

PATIENT
  Age: 30 Year
  Sex: Female
  Weight: 93 kg

DRUGS (16)
  1. SEROQUEL [Suspect]
     Indication: ANXIETY
     Dosage: 75MG TO 400MG
     Route: 048
     Dates: start: 19990226, end: 20000823
  2. SEROQUEL [Suspect]
     Indication: AGITATION
     Dosage: 75MG TO 400MG
     Route: 048
     Dates: start: 19990226, end: 20000823
  3. SEROQUEL [Suspect]
     Route: 048
     Dates: start: 20000101
  4. SEROQUEL [Suspect]
     Route: 048
     Dates: start: 20000101
  5. SEROQUEL [Suspect]
     Route: 048
     Dates: start: 20020612
  6. SEROQUEL [Suspect]
     Route: 048
     Dates: start: 20020612
  7. RISPERDAL [Concomitant]
     Indication: MENTAL DISORDER
     Route: 048
     Dates: start: 19970101
  8. ZYPREXA [Concomitant]
     Indication: MENTAL DISORDER
     Route: 048
     Dates: start: 19960101
  9. ZYPREXA [Concomitant]
     Dates: start: 19990113
  10. NAPROXEN [Concomitant]
     Dosage: STRENGHT-275MG TO 500MG
     Dates: start: 19991008
  11. CELEXA [Concomitant]
     Route: 048
     Dates: start: 20000818
  12. HYDROCHLOROTHIAZIDE [Concomitant]
     Route: 048
     Dates: start: 20020219
  13. ALTACE [Concomitant]
     Dates: start: 20030902
  14. METOPROLOL [Concomitant]
     Route: 048
     Dates: start: 20041102
  15. PROMETHAZINE [Concomitant]
     Indication: NAUSEA
     Dosage: 25MG, EVERY 4 TO 6 HRS
     Route: 048
     Dates: start: 20020629
  16. PAXIL [Concomitant]
     Dosage: 40MG TO 60MG, DAILY
     Dates: start: 19990127

REACTIONS (5)
  - DIABETES MELLITUS [None]
  - GESTATIONAL DIABETES [None]
  - HYPERGLYCAEMIA [None]
  - INSULIN-REQUIRING TYPE 2 DIABETES MELLITUS [None]
  - TYPE 2 DIABETES MELLITUS [None]
